FAERS Safety Report 14602247 (Version 2)
Quarter: 2018Q3

REPORT INFORMATION
  Report Type: Report from Study
  Country: FR (occurrence: FR)
  Receive Date: 20180306
  Receipt Date: 20180704
  Transmission Date: 20181010
  Serious: Yes (Disabling, Other)
  Sender: FDA-Public Use
  Company Number: FR-ACCORD-064025

PATIENT
  Age: 52 Year
  Sex: Male

DRUGS (2)
  1. CISPLATIN. [Suspect]
     Active Substance: CISPLATIN
     Indication: SALIVARY GLAND NEOPLASM
  2. VINORELBINE [Suspect]
     Active Substance: VINORELBINE\VINORELBINE TARTRATE
     Indication: SALIVARY GLAND NEOPLASM

REACTIONS (2)
  - Hereditary motor and sensory neuropathy [Recovering/Resolving]
  - Condition aggravated [Recovering/Resolving]
